FAERS Safety Report 18834303 (Version 1)
Quarter: 2021Q1

REPORT INFORMATION
  Report Type: Spontaneous
  Country: US (occurrence: US)
  Receive Date: 20210203
  Receipt Date: 20210203
  Transmission Date: 20210419
  Serious: No
  Sender: FDA-Public Use
  Company Number: US-ALLERGAN-2026269US

PATIENT
  Age: 45 Year
  Sex: Female

DRUGS (3)
  1. BOTOX [Suspect]
     Active Substance: ONABOTULINUMTOXINA
     Indication: SKIN WRINKLING
     Dosage: 6 UNITS, SINGLE
     Dates: start: 20200616, end: 20200616
  2. BOTOX [Suspect]
     Active Substance: ONABOTULINUMTOXINA
     Indication: SKIN WRINKLING
     Dosage: 6 UNITS, SINGLE
     Dates: start: 20200616, end: 20200616
  3. BOTOX [Suspect]
     Active Substance: ONABOTULINUMTOXINA
     Indication: SKIN WRINKLING
     Dosage: 18 UNITS, SINGLE
     Dates: start: 20200616, end: 20200616

REACTIONS (11)
  - Hypoaesthesia [Unknown]
  - Headache [Recovered/Resolved]
  - Vomiting [Unknown]
  - Migraine [Unknown]
  - Eyelid ptosis [Recovering/Resolving]
  - Tinnitus [Unknown]
  - Vision blurred [Recovered/Resolved]
  - Mydriasis [Recovering/Resolving]
  - Diplopia [Recovered/Resolved]
  - Vertigo [Unknown]
  - Paraesthesia [Unknown]

NARRATIVE: CASE EVENT DATE: 20200616
